FAERS Safety Report 17218831 (Version 1)
Quarter: 2019Q4

REPORT INFORMATION
  Report Type: Spontaneous
  Country: US (occurrence: US)
  Receive Date: 20191207
  Receipt Date: 20191207
  Transmission Date: 20200122
  Serious: Yes (Hospitalization)
  Sender: FDA-Public Use
  Company Number: None

PATIENT
  Sex: Male
  Weight: 79.3 kg

DRUGS (5)
  1. CARBOPLATIN. [Suspect]
     Active Substance: CARBOPLATIN
  2. IFOSFAMIDE. [Suspect]
     Active Substance: IFOSFAMIDE
  3. ETOPOSIDE (VP-16) [Suspect]
     Active Substance: ETOPOSIDE
  4. TAXOL [Suspect]
     Active Substance: PACLITAXEL
  5. NEULASTA [Suspect]
     Active Substance: PEGFILGRASTIM

REACTIONS (4)
  - Febrile neutropenia [None]
  - Diarrhoea [None]
  - Vomiting [None]
  - Abdominal pain [None]

NARRATIVE: CASE EVENT DATE: 20191129
